FAERS Safety Report 15482301 (Version 1)
Quarter: 2018Q4

REPORT INFORMATION
  Report Type: Spontaneous
  Country: PL (occurrence: PL)
  Receive Date: 20181010
  Receipt Date: 20181010
  Transmission Date: 20190205
  Serious: Yes (Other)
  Sender: FDA-Public Use
  Company Number: PL-PFIZER INC-2018405380

PATIENT
  Age: 52 Year
  Sex: Male

DRUGS (1)
  1. SUNITINIB MALATE. [Suspect]
     Active Substance: SUNITINIB MALATE
     Indication: RENAL CELL CARCINOMA STAGE III
     Dosage: 37.5 MG, TREATMENT CONTINUATION WITH 75% OF THE DOSE, I.E. 37,5 MG

REACTIONS (10)
  - Hypothyroidism [Unknown]
  - Hiatus hernia [Unknown]
  - Neutropenia [Unknown]
  - Granulocytopenia [Unknown]
  - Neutropenia [Unknown]
  - Neoplasm progression [Unknown]
  - Pulmonary mass [Unknown]
  - Thrombocytopenia [Unknown]
  - Anal fistula [Unknown]
  - Anal abscess [Unknown]

NARRATIVE: CASE EVENT DATE: 20120605
